FAERS Safety Report 10095066 (Version 3)
Quarter: 2014Q2

REPORT INFORMATION
  Report Type: Spontaneous
  Country: US (occurrence: US)
  Receive Date: 20140422
  Receipt Date: 20140605
  Transmission Date: 20141212
  Serious: Yes (Other)
  Sender: FDA-Public Use
  Company Number: US-BAYER-2014-057676

PATIENT
  Age: 49 Year
  Sex: Female

DRUGS (1)
  1. MIRENA [Suspect]
     Indication: CONTRACEPTION
     Dosage: 20 MCG/24HR, CONT
     Route: 015
     Dates: start: 20020829

REACTIONS (7)
  - Embedded device [None]
  - Device dislocation [None]
  - Device misuse [None]
  - Abdominal pain [None]
  - Abdominal distension [None]
  - Headache [None]
  - Weight increased [None]
